FAERS Safety Report 4390218-9 (Version None)
Quarter: 2004Q3

REPORT INFORMATION
  Report Type: 
  Country: None (occurrence: None)
  Receive Date: 20040706
  Receipt Date: 20040623
  Transmission Date: 20050211
  Serious: Yes (Hospitalization)
  Sender: FDA-Public Use
  Company Number: NO-BRISTOL-MYERS SQUIBB COMPANY-12623161

PATIENT
  Age: 51 Year
  Sex: Female

DRUGS (3)
  1. APROVEL TABS 150 MG [Suspect]
     Indication: HYPERTENSION
     Route: 048
     Dates: start: 20040524, end: 20040605
  2. IMUREL [Concomitant]
     Indication: LUPUS NEPHRITIS
     Dosage: DURATION: SEVERAL YEARS
     Route: 048
  3. PREDNISOLONE [Concomitant]
     Indication: LUPUS NEPHRITIS
     Dosage: 3.75MG= 2.75MG/5MG ALTERNATE DAYS; DURATION: SEVERAL YEARS
     Route: 048

REACTIONS (7)
  - ANGIONEUROTIC OEDEMA [None]
  - CHILLS [None]
  - DIARRHOEA [None]
  - HYPOTENSION [None]
  - MALAISE [None]
  - MYALGIA [None]
  - RASH [None]
